FAERS Safety Report 23232625 (Version 1)
Quarter: 2023Q4

REPORT INFORMATION
  Report Type: Spontaneous
  Country: GB (occurrence: GB)
  Receive Date: 20231128
  Receipt Date: 20231128
  Transmission Date: 20240109
  Serious: Yes (Other)
  Sender: FDA-Public Use
  Company Number: GB-MHRA-TPP60382891C9556588YC1699974315605

PATIENT
  Age: 22 Year
  Sex: Male
  Weight: 60 kg

DRUGS (1)
  1. AMOXICILLIN [Suspect]
     Active Substance: AMOXICILLIN
     Indication: Product used for unknown indication
     Dosage: UNK
     Route: 065

REACTIONS (2)
  - Pharyngeal swelling [Unknown]
  - Rash [Recovered/Resolved with Sequelae]
